FAERS Safety Report 5552556-3 (Version None)
Quarter: 2007Q4

REPORT INFORMATION
  Report Type: 
  Country: None (occurrence: None)
  Receive Date: 20071130
  Receipt Date: 20071124
  Transmission Date: 20080405
  Serious: Yes (Other)
  Sender: FDA-Public Use
  Company Number: CHPA2007USA12634

PATIENT
  Age: 23 Year
  Sex: Female
  Weight: 81.6 kg

DRUGS (1)
  1. EXCEDRIN (MIGRAINE) [Suspect]
     Dosage: 15-20 TABLETS

REACTIONS (2)
  - MALAISE [None]
  - OVERDOSE [None]
